FAERS Safety Report 19713675 (Version 1)
Quarter: 2021Q3

REPORT INFORMATION
  Report Type: Spontaneous
  Country: CN (occurrence: CN)
  Receive Date: 20210818
  Receipt Date: 20210818
  Transmission Date: 20211014
  Serious: Yes (Other)
  Sender: FDA-Public Use
  Company Number: CN-ROCHE-2890718

PATIENT
  Age: 59 Year
  Sex: Female
  Weight: 61 kg

DRUGS (2)
  1. HERCEPTIN [Suspect]
     Active Substance: TRASTUZUMAB
     Indication: INVASIVE DUCTAL BREAST CARCINOMA
     Route: 041
     Dates: start: 20210707, end: 20210707
  2. PACLITAXEL FOR INJECTION (ALBUMIN BOUND) [Suspect]
     Active Substance: PACLITAXEL
     Indication: INVASIVE DUCTAL BREAST CARCINOMA
     Route: 041
     Dates: start: 20210707, end: 20210707

REACTIONS (1)
  - Renal injury [Recovering/Resolving]

NARRATIVE: CASE EVENT DATE: 20210722
